FAERS Safety Report 9772910 (Version 3)
Quarter: 2014Q2

REPORT INFORMATION
  Report Type: Spontaneous
  Country: FR (occurrence: FR)
  Receive Date: 20131219
  Receipt Date: 20140625
  Transmission Date: 20141212
  Serious: Yes (Hospitalization, Other)
  Sender: FDA-Public Use
  Company Number: FR-GLAXOSMITHKLINE-B0954173A

PATIENT
  Age: 75 Year
  Sex: Male
  Weight: 83 kg

DRUGS (5)
  1. ARZERRA [Suspect]
     Indication: CHRONIC LYMPHOCYTIC LEUKAEMIA
     Route: 042
     Dates: start: 20131122, end: 20140515
  2. FLECAINE [Concomitant]
     Indication: ATRIAL FIBRILLATION
     Dosage: 200MG PER DAY
     Route: 065
  3. SINTROM [Concomitant]
     Dosage: 2MG PER DAY
     Route: 065
  4. ARANESP [Concomitant]
     Route: 065
  5. METHYLPREDNISOLONE [Concomitant]
     Route: 042
     Dates: start: 20131122

REACTIONS (9)
  - Electrocardiogram QT prolonged [Recovered/Resolved]
  - Electrocardiogram T wave inversion [Recovered/Resolved]
  - Myocardial ischaemia [Recovered/Resolved]
  - Troponin increased [Recovering/Resolving]
  - Bradycardia [Recovered/Resolved]
  - Hypotension [Recovered/Resolved]
  - Dyspnoea [Recovered/Resolved]
  - Tachypnoea [Recovered/Resolved]
  - Torsade de pointes [Recovered/Resolved]
